FAERS Safety Report 11883802 (Version 1)
Quarter: 2016Q1

REPORT INFORMATION
  Report Type: Spontaneous
  Country: US (occurrence: US)
  Receive Date: 20160101
  Receipt Date: 20160101
  Transmission Date: 20160526
  Serious: No
  Sender: FDA-Public Use
  Company Number: US-ASTRAZENECA-2015SF30358

PATIENT
  Age: 66 Year
  Sex: Female
  Weight: 94.8 kg

DRUGS (3)
  1. FLEX [Concomitant]
  2. BYDUREON [Suspect]
     Active Substance: EXENATIDE
     Indication: TYPE 2 DIABETES MELLITUS
     Route: 058
  3. BABY ASPIRIN [Concomitant]
     Active Substance: ASPIRIN

REACTIONS (5)
  - Injection site bruising [Unknown]
  - Product quality issue [Unknown]
  - Injection site pain [Unknown]
  - Intentional device misuse [Unknown]
  - Needle issue [Unknown]
